FAERS Safety Report 4348486-5 (Version None)
Quarter: 2004Q2

REPORT INFORMATION
  Report Type: 
  Country: None (occurrence: None)
  Receive Date: 20040427
  Receipt Date: 20040315
  Transmission Date: 20050107
  Serious: No
  Sender: FDA-Public Use
  Company Number: US-GLAXOSMITHKLINE-A0502860A

PATIENT
  Sex: Female

DRUGS (6)
  1. VENTOLIN [Suspect]
     Indication: ILL-DEFINED DISORDER
     Route: 055
     Dates: start: 20040201
  2. FLOVENT [Concomitant]
  3. ATROVENT [Concomitant]
  4. INTAL [Concomitant]
  5. PROVENTIL SOLUTION [Concomitant]
  6. VENTOLIN [Concomitant]

REACTIONS (1)
  - DRUG INEFFECTIVE [None]
